FAERS Safety Report 7701025-0 (Version None)
Quarter: 2011Q3

REPORT INFORMATION
  Report Type: 
  Country: None (occurrence: None)
  Receive Date: 20110822
  Receipt Date: 20110809
  Transmission Date: 20111222
  Serious: Yes (Hospitalization, Other)
  Sender: FDA-Public Use
  Company Number: US-BAYER-201040478NA

PATIENT
  Age: 33 Year
  Sex: Female
  Weight: 83.9 kg

DRUGS (15)
  1. YAZ [Suspect]
     Indication: ACNE
     Route: 048
     Dates: start: 20081101, end: 20090101
  2. MOTRIN [Concomitant]
     Indication: GALLBLADDER DISORDER
     Dosage: 800 MG, TID
     Route: 048
  3. PERCOCET [Concomitant]
     Indication: PAIN
     Route: 048
  4. YAZ [Suspect]
     Indication: PREMENSTRUAL SYNDROME
  5. YASMIN [Suspect]
     Indication: ACNE
     Route: 048
     Dates: start: 20081101, end: 20090101
  6. PROZAC [Concomitant]
     Indication: POST-TRAUMATIC STRESS DISORDER
  7. YASMIN [Suspect]
  8. YAZ [Suspect]
  9. HYDROCODONE [Concomitant]
     Indication: PAIN
     Route: 048
  10. PROZAC [Concomitant]
     Indication: PREMENSTRUAL SYNDROME
     Dosage: 20 MG, QD
     Route: 048
     Dates: start: 20010101
  11. PROZAC [Concomitant]
     Indication: DEPRESSION
  12. YASMIN [Suspect]
     Indication: PREMENSTRUAL SYNDROME
  13. DEMULIN [Concomitant]
     Route: 048
  14. BENTYL [Concomitant]
     Indication: GASTROOESOPHAGEAL REFLUX DISEASE
     Route: 048
  15. OXYCODONE HCL [Concomitant]
     Indication: GALLBLADDER DISORDER
     Dosage: 5 MG, QID
     Route: 048

REACTIONS (3)
  - GALLBLADDER DISORDER [None]
  - CHOLECYSTITIS CHRONIC [None]
  - IRRITABLE BOWEL SYNDROME [None]
